FAERS Safety Report 6259813-6 (Version None)
Quarter: 2009Q3

REPORT INFORMATION
  Report Type: 
  Country: None (occurrence: None)
  Receive Date: 20090708
  Receipt Date: 20090608
  Transmission Date: 20100115
  Serious: No
  Sender: FDA-Public Use
  Company Number: US-BAYER-200911779BCC

PATIENT
  Age: 80 Year
  Sex: Female

DRUGS (4)
  1. ALEVE (CAPLET) [Suspect]
     Indication: DRUG USE FOR UNKNOWN INDICATION
     Dosage: TOTAL DAILY DOSE: 440 MG  UNIT DOSE: 220 MG
     Route: 048
     Dates: start: 20090607, end: 20090607
  2. ALTACE [Concomitant]
     Route: 065
  3. NORVASC [Concomitant]
     Route: 065
  4. CLARITIN [Concomitant]
     Indication: PRURITUS
     Route: 065

REACTIONS (1)
  - PRURITUS [None]
